FAERS Safety Report 11577506 (Version 1)
Quarter: 2015Q3

REPORT INFORMATION
  Report Type: Spontaneous
  Country: US (occurrence: US)
  Receive Date: 20150916
  Receipt Date: 20150916
  Transmission Date: 20151125
  Serious: No
  Sender: FDA-Public Use
  Company Number: US-ELI_LILLY_AND_COMPANY-US201306004493

PATIENT
  Age: 52 Year
  Sex: Female

DRUGS (1)
  1. HUMALOG [Suspect]
     Active Substance: INSULIN LISPRO
     Route: 058

REACTIONS (9)
  - Nausea [Unknown]
  - Vomiting [Unknown]
  - Irritability [Unknown]
  - Visual impairment [Unknown]
  - Pollakiuria [Unknown]
  - Fall [Recovered/Resolved]
  - Dyspnoea [Unknown]
  - Ligament sprain [Unknown]
  - Blood glucose increased [Unknown]

NARRATIVE: CASE EVENT DATE: 20130601
